FAERS Safety Report 11830689 (Version 1)
Quarter: 2015Q4

REPORT INFORMATION
  Report Type: Spontaneous
  Country: JP (occurrence: JP)
  Receive Date: 20151214
  Receipt Date: 20151214
  Transmission Date: 20160305
  Serious: Yes (Hospitalization)
  Sender: FDA-Public Use
  Company Number: JP-CIPLA LTD.-2015JP09115

PATIENT

DRUGS (2)
  1. DONEPEZIL. [Suspect]
     Active Substance: DONEPEZIL
     Indication: DEMENTIA ALZHEIMER^S TYPE
     Dosage: 5 MG, QD
     Route: 048
  2. BISOPROLOL [Concomitant]
     Active Substance: BISOPROLOL
     Dosage: 5 MG, QD
     Route: 065

REACTIONS (17)
  - Ventricular extrasystoles [Recovering/Resolving]
  - Syncope [Unknown]
  - Diarrhoea [Unknown]
  - Hypovolaemia [Unknown]
  - Cardiothoracic ratio increased [Unknown]
  - Cardiac aneurysm [Unknown]
  - White blood cell count increased [Unknown]
  - Blood potassium decreased [Unknown]
  - Seizure [Unknown]
  - Electrocardiogram QT prolonged [Recovering/Resolving]
  - Electrocardiogram ST segment elevation [Unknown]
  - Coronary artery disease [Unknown]
  - Torsade de pointes [Recovered/Resolved]
  - Colitis [Unknown]
  - Obesity [Unknown]
  - Brain natriuretic peptide increased [Unknown]
  - Atrial fibrillation [Recovered/Resolved]
